FAERS Safety Report 6297221-2 (Version None)
Quarter: 2009Q3

REPORT INFORMATION
  Report Type: 
  Country: None (occurrence: None)
  Receive Date: 20090804
  Receipt Date: 20090804
  Transmission Date: 20100115
  Serious: Yes (Other)
  Sender: FDA-Public Use
  Company Number: None

PATIENT
  Sex: Male
  Weight: 13.2087 kg

DRUGS (2)
  1. CEFDINIR [Suspect]
     Indication: EAR DISORDER
     Dosage: 4 CC X 2 A DAY
     Dates: start: 20090708
  2. CEFDINIR [Suspect]
     Indication: EFFUSION
     Dosage: 4 CC X 2 A DAY
     Dates: start: 20090708

REACTIONS (6)
  - COUGH [None]
  - ERYTHEMA [None]
  - EYELID OEDEMA [None]
  - NONSPECIFIC REACTION [None]
  - OCULAR HYPERAEMIA [None]
  - URTICARIA [None]
